FAERS Safety Report 6681452-3 (Version None)
Quarter: 2010Q2

REPORT INFORMATION
  Report Type: 
  Country: None (occurrence: None)
  Receive Date: 20100414
  Receipt Date: 20100407
  Transmission Date: 20101027
  Serious: Yes (Hospitalization)
  Sender: FDA-Public Use
  Company Number: US-ABBOTT-10P-163-0631801-00

PATIENT
  Sex: Male

DRUGS (2)
  1. DEPAKOTE ER [Suspect]
     Indication: BIPOLAR DISORDER
     Dates: start: 20020701, end: 20100311
  2. DEPAKOTE ER [Suspect]
     Indication: MANIA

REACTIONS (2)
  - CHOLELITHIASIS [None]
  - PANCREATITIS [None]
